FAERS Safety Report 8793615 (Version 2)
Quarter: 2012Q4

REPORT INFORMATION
  Report Type: 
  Country: FR (occurrence: FR)
  Receive Date: 20120917
  Receipt Date: 20121217
  Transmission Date: 20130627
  Serious: Yes (Hospitalization)
  Sender: FDA-Public Use
  Company Number: FR-GLAXOSMITHKLINE-B0828220A

PATIENT
  Age: 91 None
  Sex: Female

DRUGS (5)
  1. LAMICTAL [Suspect]
     Indication: EPILEPSY
     Route: 048
     Dates: start: 20120524, end: 20120731
  2. XANAX [Concomitant]
     Dosage: 1UNIT Per day
     Route: 048
     Dates: start: 20120711, end: 20120712
  3. FUROSEMIDE [Concomitant]
     Dosage: 40MG Per day
     Route: 048
  4. NEBIVOLOL [Concomitant]
     Dosage: 2.5MG Per day
     Route: 065
  5. PREVISCAN [Concomitant]
     Dosage: 15MG Per day
     Route: 048

REACTIONS (2)
  - Rash maculo-papular [Recovered/Resolved]
  - Eosinophilia [Recovering/Resolving]
